FAERS Safety Report 12441159 (Version 3)
Quarter: 2016Q3

REPORT INFORMATION
  Report Type: Report from Study
  Country: DE (occurrence: DE)
  Receive Date: 20160607
  Receipt Date: 20160711
  Transmission Date: 20161109
  Serious: Yes (Life-Threatening, Hospitalization, Other)
  Sender: FDA-Public Use
  Company Number: DE-ROCHE-1482337

PATIENT
  Age: 50 Year
  Sex: Female
  Weight: 83.7 kg

DRUGS (4)
  1. BEVACIZUMAB [Suspect]
     Active Substance: BEVACIZUMAB
     Dosage: LAST DOSE PRIOR TO SAE: 15/AUG/2014
     Route: 042
     Dates: start: 20140815, end: 20140815
  2. BEVACIZUMAB [Suspect]
     Active Substance: BEVACIZUMAB
     Indication: BREAST CANCER
     Dosage: LAST DOSE PRIOR TOSAE: 04/JUL/2014
     Route: 042
     Dates: start: 20140327
  3. PACLITAXEL. [Suspect]
     Active Substance: PACLITAXEL
     Indication: BREAST CANCER
     Dosage: LAST DOSE PRIOR TO SAE: 04/JUL/2014
     Route: 042
     Dates: start: 20140327, end: 20140801
  4. PACLITAXEL. [Suspect]
     Active Substance: PACLITAXEL
     Dosage: ALSO RECEIVED ON 22/AUG/2014
     Route: 042
     Dates: start: 20140815

REACTIONS (4)
  - Large intestinal stenosis [Recovered/Resolved]
  - Diverticulum intestinal [Unknown]
  - Hypertension [Not Recovered/Not Resolved]
  - Intestinal perforation [Recovered/Resolved]

NARRATIVE: CASE EVENT DATE: 20140704
